FAERS Safety Report 5821665-3 (Version None)
Quarter: 2008Q3

REPORT INFORMATION
  Report Type: 
  Country: None (occurrence: None)
  Receive Date: 20080721
  Receipt Date: 20080703
  Transmission Date: 20090109
  Serious: Yes (Hospitalization, Other)
  Sender: FDA-Public Use
  Company Number: DSA_32099_2008

PATIENT
  Sex: Female

DRUGS (1)
  1. LORAZEPAM [Suspect]
     Indication: ANXIETY
     Dosage: DF SUBLINGUAL
     Route: 060
     Dates: start: 20060101

REACTIONS (2)
  - DRUG DEPENDENCE [None]
  - PULMONARY EMBOLISM [None]
